FAERS Safety Report 8991442 (Version 1)
Quarter: 2012Q4

REPORT INFORMATION
  Report Type: Report from Study
  Country: US (occurrence: US)
  Receive Date: 20121231
  Receipt Date: 20121231
  Transmission Date: 20130627
  Serious: Yes (Hospitalization)
  Sender: FDA-Public Use
  Company Number: US-ROCHE-1172936

PATIENT
  Sex: Male

DRUGS (1)
  1. OMALIZUMAB [Suspect]
     Indication: INFLAMMATION
     Route: 065

REACTIONS (3)
  - Asthma [Unknown]
  - Arterial occlusive disease [Unknown]
  - Cardiac operation [Unknown]
